FAERS Safety Report 19856207 (Version 1)
Quarter: 2021Q3

REPORT INFORMATION
  Report Type: Spontaneous
  Country: DE (occurrence: DE)
  Receive Date: 20210920
  Receipt Date: 20210920
  Transmission Date: 20211014
  Serious: Yes (Hospitalization)
  Sender: FDA-Public Use
  Company Number: DE-TEVA-2021-DE-1952916

PATIENT
  Age: 82 Year
  Sex: Male
  Weight: 98.1 kg

DRUGS (13)
  1. MAGNESIUM AL 243MG [Concomitant]
     Dosage: 243 MILLIGRAM DAILY;  1?0?0?0
     Route: 048
  2. TRAMADOL. [Concomitant]
     Active Substance: TRAMADOL
     Dosage: 100 MG, IF NECESSARY
     Route: 048
  3. TREVILOR RETARD [Suspect]
     Active Substance: VENLAFAXINE HYDROCHLORIDE
     Dosage: 75 MILLIGRAM DAILY;  1?0?0?0
     Route: 048
  4. TADALAFIL?1A PHARMA 5MG [Suspect]
     Active Substance: TADALAFIL
     Dosage: 5 MILLIGRAM DAILY;   1?0?0?0
     Route: 048
  5. MACROGOL ABZ BALANCE [Concomitant]
     Active Substance: POLYETHYLENE GLYCOL 3350\POTASSIUM CHLORIDE\SODIUM BICARBONATE\SODIUM CHLORIDE
     Dosage: 1 DOSAGE FORMS DAILY; 1?0?0?0
     Route: 048
  6. PREGABALIN. [Concomitant]
     Active Substance: PREGABALIN
     Dosage: 75 MILLIGRAM DAILY;  0?0?1?0
     Route: 048
  7. ACETYLSALICYLSAURE [Concomitant]
     Active Substance: ASPIRIN
     Dosage: 100 MILLIGRAM DAILY;  0?1?0?0
     Route: 048
  8. BISOPROLOL [Concomitant]
     Active Substance: BISOPROLOL
     Dosage: 5 MILLIGRAM DAILY;  1?0?1?0
     Route: 048
  9. DEKRISTOL 20000I.E. [Concomitant]
     Dosage: 20000 IU (INTERNATIONAL UNIT) DAILY;  1?0?0?0
     Route: 048
  10. TORASEMID [Suspect]
     Active Substance: TORSEMIDE
     Dosage: 4 DOSAGE FORMS DAILY; 50 MG, 2?2?0?0,
     Route: 061
  11. XIPAMID AAA?PHARMA 20MG [Suspect]
     Active Substance: XIPAMIDE
     Dosage: .5 DOSAGE FORMS DAILY; 20 MG, 0.5?0?0?0
     Route: 048
  12. CLOPIDOGREL [Concomitant]
     Active Substance: CLOPIDOGREL BISULFATE
     Dosage: 75 MILLIGRAM DAILY;  1?0?0?0
     Route: 048
  13. PANTOPRAZOL [Concomitant]
     Active Substance: PANTOPRAZOLE SODIUM
     Dosage: 40 MILLIGRAM DAILY;  1?0?0?0
     Route: 048

REACTIONS (5)
  - Nausea [Unknown]
  - Dyspnoea at rest [Unknown]
  - Dysuria [Unknown]
  - Nocturia [Unknown]
  - Asthenia [Unknown]
